FAERS Safety Report 22689364 (Version 4)
Quarter: 2023Q4

REPORT INFORMATION
  Report Type: Spontaneous
  Country: BE (occurrence: BE)
  Receive Date: 20230711
  Receipt Date: 20231023
  Transmission Date: 20240110
  Serious: Yes (Other)
  Sender: FDA-Public Use
  Company Number: BE-JNJFOC-20230701754

PATIENT
  Age: 42 Year
  Sex: Female

DRUGS (2)
  1. TREMFYA [Suspect]
     Active Substance: GUSELKUMAB
     Indication: Psoriasis
     Route: 065
     Dates: start: 20230424
  2. TREMFYA [Suspect]
     Active Substance: GUSELKUMAB
     Indication: Arthropathy
     Route: 065
     Dates: start: 20230505

REACTIONS (2)
  - Hypothyroidism [Unknown]
  - Gamma-glutamyltransferase increased [Unknown]
